FAERS Safety Report 6275087-4 (Version None)
Quarter: 2009Q3

REPORT INFORMATION
  Report Type: 
  Country: None (occurrence: None)
  Receive Date: 20090721
  Receipt Date: 20090709
  Transmission Date: 20100115
  Serious: No
  Sender: FDA-Public Use
  Company Number: PHEH2009US07351

PATIENT
  Age: 69 Year
  Sex: Female
  Weight: 92.063 kg

DRUGS (2)
  1. RECLAST [Suspect]
     Indication: OSTEOPOROSIS
     Dosage: 5 MG, ONCE/SINGLE
     Dates: start: 20090609, end: 20090609
  2. KLONOPIN [Concomitant]
     Dosage: UNK, UNK

REACTIONS (4)
  - BLOOD PARATHYROID HORMONE INCREASED [None]
  - BONE PAIN [None]
  - HYPOCALCAEMIA [None]
  - MYALGIA [None]
